FAERS Safety Report 21986734 (Version 4)
Quarter: 2023Q2

REPORT INFORMATION
  Report Type: Spontaneous
  Country: None (occurrence: DE)
  Receive Date: 20230213
  Receipt Date: 20230620
  Transmission Date: 20230722
  Serious: Yes (Other)
  Sender: FDA-Public Use
  Company Number: DE-Ascend Therapeutics US, LLC-2137882

PATIENT
  Age: 7 Year
  Sex: Male

DRUGS (3)
  1. ESTROGEL [Suspect]
     Active Substance: ESTRADIOL
     Indication: Product used for unknown indication
     Route: 062
  2. ESTROGEL [Suspect]
     Active Substance: ESTRADIOL
  3. ESTRADIOL [Suspect]
     Active Substance: ESTRADIOL
     Route: 062

REACTIONS (8)
  - Epiphyses premature fusion [Recovering/Resolving]
  - Gynaecomastia [Recovering/Resolving]
  - Body height increased [Recovering/Resolving]
  - Precocious puberty [Recovering/Resolving]
  - Exposure via skin contact [None]
  - Accidental exposure to product by child [Recovered/Resolved]
  - Skin odour abnormal [Unknown]
  - Pigmentation disorder [Unknown]
